FAERS Safety Report 9848128 (Version 2)
Quarter: 2014Q1

REPORT INFORMATION
  Report Type: Spontaneous
  Country: US (occurrence: US)
  Receive Date: 20140128
  Receipt Date: 20140128
  Transmission Date: 20141002
  Serious: No
  Sender: FDA-Public Use
  Company Number: US-PFIZER INC-2013173478

PATIENT
  Sex: 0

DRUGS (8)
  1. ENBREL [Suspect]
     Dosage: UNK
  2. ZOLOFT [Suspect]
     Indication: PANIC ATTACK
     Dosage: UNK
  3. ZOLOFT [Suspect]
     Indication: ANXIETY
  4. HUMIRA [Suspect]
     Dosage: 40 MG, UNK
     Route: 065
  5. ZEGERID [Concomitant]
     Indication: GASTRITIS EROSIVE
     Dosage: UNK, DAILY
     Route: 065
  6. ZEGERID [Concomitant]
     Indication: PROPHYLAXIS
  7. CLONOPIN [Concomitant]
     Indication: ANXIETY
     Dosage: UNK (AS REQUIRED)
     Route: 065
  8. FOLIC ACID [Concomitant]
     Dosage: UNK

REACTIONS (8)
  - Anxiety [Unknown]
  - Fatigue [Unknown]
  - Drug ineffective [Unknown]
  - Feeling abnormal [Unknown]
  - Pain [Unknown]
  - Upper respiratory tract infection [Unknown]
  - Disturbance in attention [Unknown]
  - Panic attack [Unknown]
